FAERS Safety Report 14311818 (Version 2)
Quarter: 2017Q4

REPORT INFORMATION
  Report Type: Spontaneous
  Country: FR (occurrence: FR)
  Receive Date: 20171221
  Receipt Date: 20171229
  Transmission Date: 20180321
  Serious: Yes (Other)
  Sender: FDA-Public Use
  Company Number: FR-MERCK KGAA-2037515

PATIENT
  Age: 57 Year
  Sex: Female
  Weight: 57 kg

DRUGS (2)
  1. NOVOTHYROX [Suspect]
     Active Substance: LEVOTHYROXINE SODIUM
     Indication: HYPOTHYROIDISM
     Route: 048
     Dates: start: 20170418
  2. NOVOTHYROX [Suspect]
     Active Substance: LEVOTHYROXINE SODIUM

REACTIONS (4)
  - Tachycardia [Unknown]
  - Fatigue [Recovered/Resolved]
  - Blood thyroid stimulating hormone increased [Unknown]
  - Alopecia [Unknown]

NARRATIVE: CASE EVENT DATE: 20170515
